FAERS Safety Report 7406384-4 (Version None)
Quarter: 2011Q2

REPORT INFORMATION
  Report Type: 
  Country: None (occurrence: None)
  Receive Date: 20110411
  Receipt Date: 20110330
  Transmission Date: 20111010
  Serious: Yes (Other)
  Sender: FDA-Public Use
  Company Number: PHFR2011GB02284

PATIENT
  Sex: Female

DRUGS (1)
  1. FEMARA [Suspect]
     Dosage: UNK , UNK
     Dates: start: 20100401

REACTIONS (6)
  - ANXIETY [None]
  - ALOPECIA [None]
  - JAUNDICE [None]
  - PANCREATIC ENLARGEMENT [None]
  - BENIGN HEPATIC NEOPLASM [None]
  - RASH [None]
